FAERS Safety Report 23973271 (Version 3)
Quarter: 2024Q2

REPORT INFORMATION
  Report Type: Spontaneous
  Country: US (occurrence: US)
  Receive Date: 20240613
  Receipt Date: 20240625
  Transmission Date: 20240716
  Serious: No
  Sender: FDA-Public Use
  Company Number: US-002147023-NVSC2024US124307

PATIENT
  Age: 72 Year
  Sex: Female
  Weight: 67.5 kg

DRUGS (1)
  1. LEQVIO [Suspect]
     Active Substance: INCLISIRAN SODIUM
     Indication: Hyperlipidaemia
     Dosage: 284 MG/KG (LIQUID) (INITIAL, 3 MONTHS, THEN EVERY 6 MONTHS) (1.5 MG/ML)
     Route: 058
     Dates: start: 20240328, end: 20240328

REACTIONS (6)
  - Pain [Unknown]
  - Dyspnoea [Unknown]
  - Chest pain [Recovered/Resolved]
  - Fatigue [Recovered/Resolved]
  - Headache [Recovered/Resolved]
  - Dizziness [Recovered/Resolved]

NARRATIVE: CASE EVENT DATE: 20240328
